FAERS Safety Report 10215807 (Version 1)
Quarter: 2014Q2

REPORT INFORMATION
  Report Type: Spontaneous
  Country: US (occurrence: None)
  Receive Date: 20140603
  Receipt Date: 20140603
  Transmission Date: 20141212
  Serious: Yes (Death, Hospitalization)
  Sender: FDA-Public Use
  Company Number: None

PATIENT
  Age: 66 Year
  Sex: Male
  Weight: 81 kg

DRUGS (2)
  1. SOFOSBUVIR [Suspect]
     Indication: HEPATITIS C
     Route: 048
     Dates: start: 20140305, end: 20140320
  2. RIBAVIRIN [Suspect]
     Indication: HEPATITIS C
     Route: 048
     Dates: start: 20140305, end: 20140320

REACTIONS (9)
  - No therapeutic response [None]
  - Haemorrhage [None]
  - Hepatic encephalopathy [None]
  - Renal failure acute [None]
  - Haemodialysis [None]
  - Varicose vein [None]
  - Liver transplant [None]
  - Gastric haemorrhage [None]
  - Haematemesis [None]
